FAERS Safety Report 15685757 (Version 1)
Quarter: 2018Q4

REPORT INFORMATION
  Report Type: Spontaneous
  Country: CO (occurrence: CO)
  Receive Date: 20181204
  Receipt Date: 20181204
  Transmission Date: 20190205
  Serious: Yes (Hospitalization)
  Sender: FDA-Public Use
  Company Number: CO-SAKK-2018SA326732AA

PATIENT
  Age: 61 Year
  Sex: Female

DRUGS (6)
  1. ATORVASTATIN [Concomitant]
     Active Substance: ATORVASTATIN
     Dosage: UNK
     Route: 048
  2. ARAVA [Suspect]
     Active Substance: LEFLUNOMIDE
     Dosage: UNK
     Dates: start: 2016, end: 201609
  3. METOPROLOL. [Concomitant]
     Active Substance: METOPROLOL
     Indication: HYPERTENSION
     Dosage: 25 MG, QD
     Route: 048
  4. DEFLAZACORT [Concomitant]
     Active Substance: DEFLAZACORT
     Indication: RHEUMATOID ARTHRITIS
     Dosage: 6 MG, BID
     Route: 048
  5. ARAVA [Suspect]
     Active Substance: LEFLUNOMIDE
     Indication: RHEUMATOID ARTHRITIS
     Dosage: 100 MG, QD
     Route: 048
     Dates: start: 20110131, end: 2012
  6. ACETAMINOPHEN. [Concomitant]
     Active Substance: ACETAMINOPHEN
     Indication: PAIN
     Dosage: 500 MG
     Route: 048

REACTIONS (8)
  - Skin ulcer [Recovered/Resolved]
  - Alopecia [Recovered/Resolved]
  - Decreased appetite [Recovered/Resolved]
  - Condition aggravated [Recovered/Resolved]
  - Mouth swelling [Recovered/Resolved]
  - Asthenia [Recovered/Resolved]
  - Gangrene [Recovered/Resolved]
  - Paraesthesia [Recovered/Resolved]

NARRATIVE: CASE EVENT DATE: 20110131
